FAERS Safety Report 4599806-8 (Version None)
Quarter: 2005Q1

REPORT INFORMATION
  Report Type: 
  Country: None (occurrence: None)
  Receive Date: 20050303
  Receipt Date: 20050216
  Transmission Date: 20050727
  Serious: Yes (Hospitalization)
  Sender: FDA-Public Use
  Company Number: CIP05000350

PATIENT
  Age: 70 Year
  Sex: Female

DRUGS (4)
  1. MACRODANTIN [Suspect]
     Indication: URINARY TRACT INFECTION
     Dosage: UNKNOWN AT LEAST ONCE DAILY, ORAL
     Route: 048
     Dates: start: 19970201, end: 19970701
  2. DRUGS FOR TREATMENT OF BONE DISEASE [Concomitant]
  3. MAXZIDE [Concomitant]
  4. ANTIPSYCHOTICS [Concomitant]

REACTIONS (9)
  - ATRIAL FIBRILLATION [None]
  - CARDIAC FAILURE CONGESTIVE [None]
  - CYANOSIS [None]
  - DYSPNOEA [None]
  - FATIGUE [None]
  - HYPERSENSITIVITY [None]
  - OXYGEN SATURATION ABNORMAL [None]
  - PULMONARY FIBROSIS [None]
  - SINUSITIS [None]
